FAERS Safety Report 20480737 (Version 1)
Quarter: 2022Q1

REPORT INFORMATION
  Report Type: Report from Study
  Country: CN (occurrence: CN)
  Receive Date: 20220216
  Receipt Date: 20220216
  Transmission Date: 20220424
  Serious: Yes (Hospitalization)
  Sender: FDA-Public Use
  Company Number: CN-NOVARTISPH-NVSC2021CN195402

PATIENT
  Age: 85 Year
  Sex: Male
  Weight: 50 kg

DRUGS (3)
  1. ZYKADIA [Suspect]
     Active Substance: CERITINIB
     Indication: Lung adenocarcinoma
     Dosage: 300 MG, QD (DRUGS PURCHASED BY ONESELF)
     Route: 048
     Dates: start: 20200618
  2. ZYKADIA [Suspect]
     Active Substance: CERITINIB
     Dosage: UNK (150-300MG/D)
     Route: 048
     Dates: start: 20201112, end: 20210225
  3. ZYKADIA [Suspect]
     Active Substance: CERITINIB
     Dosage: 300 MG, QD
     Route: 065
     Dates: start: 202106

REACTIONS (8)
  - Nasopharyngitis [Recovering/Resolving]
  - Oropharyngeal pain [Recovering/Resolving]
  - Mouth ulceration [Unknown]
  - Lung disorder [Recovering/Resolving]
  - Dysphagia [Unknown]
  - Marasmus [Recovered/Resolved]
  - Diarrhoea [Recovered/Resolved]
  - Vomiting [Recovered/Resolved]

NARRATIVE: CASE EVENT DATE: 20201112
